FAERS Safety Report 8591354-3 (Version None)
Quarter: 2012Q3

REPORT INFORMATION
  Report Type: 
  Country: None (occurrence: None)
  Receive Date: 20120814
  Receipt Date: 20120802
  Transmission Date: 20120928
  Serious: Yes (Other)
  Sender: FDA-Public Use
  Company Number: GB-ACCORD-014345

PATIENT
  Age: 54 Year
  Sex: Female
  Weight: 90 kg

DRUGS (18)
  1. OMEPRAZOLE [Concomitant]
     Dates: start: 20120416, end: 20120705
  2. FUROSEMIDE [Concomitant]
     Dates: start: 20120416
  3. STERIMAR [Concomitant]
     Dates: start: 20120531
  4. ACETAMINOPHEN AND CODEINE PHOSPHATE [Concomitant]
     Dates: start: 20120531
  5. ACETAMINOPHEN [Concomitant]
     Dates: start: 20120416, end: 20120612
  6. SIMVASTATIN [Suspect]
     Dates: start: 20120703
  7. UREA [Concomitant]
     Dates: start: 20120416
  8. CALCICHEW D3 [Concomitant]
     Dates: start: 20120416
  9. LACTULOSE [Concomitant]
     Dates: start: 20120416, end: 20120705
  10. PREDNISOLONE [Concomitant]
     Dates: start: 20120423, end: 20120503
  11. CONJUGATED OESTROGENS EQUINE [Concomitant]
     Dates: start: 20120531
  12. ROSUVASTATIN [Concomitant]
     Dates: start: 20120416
  13. TRAMADOL HCL [Concomitant]
     Dates: start: 20120703
  14. FUCIDINE CAP [Concomitant]
     Dates: start: 20120723
  15. NAPROXEN [Concomitant]
     Dates: start: 20120413, end: 20120511
  16. MEBEVERINE HYDROCHLORIDE [Concomitant]
     Dates: start: 20120416
  17. LANSOPRAZOLE [Concomitant]
     Dates: start: 20120706
  18. LEVOTHYROXINE SODIUM [Concomitant]
     Dates: start: 20120416

REACTIONS (4)
  - CHANGE OF BOWEL HABIT [None]
  - SLEEP DISORDER [None]
  - ABDOMINAL PAIN [None]
  - MYALGIA [None]
